FAERS Safety Report 4324984-5 (Version None)
Quarter: 2004Q1

REPORT INFORMATION
  Report Type: 
  Country: None (occurrence: None)
  Receive Date: 20040322
  Receipt Date: 20040115
  Transmission Date: 20041129
  Serious: Yes (Hospitalization, Other)
  Sender: FDA-Public Use
  Company Number: AM2002-0198

PATIENT
  Age: 65 Year
  Sex: Male

DRUGS (2)
  1. ALDESLEUKIN; CHIRON (ALDESLEUKIN; CHIRON CORPORATION)INJECTION [Suspect]
     Indication: HIV INFECTION
     Dosage: 6 MIU, BID, SUBCUTAN
     Route: 058
     Dates: start: 20020311, end: 20020315
  2. TRIZIVIR (ABACAVIR SULFATE) [Concomitant]

REACTIONS (8)
  - ABDOMINAL TENDERNESS [None]
  - ATRIAL FIBRILLATION [None]
  - CARDIAC FAILURE [None]
  - CARDIOMYOPATHY ACUTE [None]
  - HEPATOMEGALY [None]
  - ORTHOPNOEA [None]
  - RALES [None]
  - WHEEZING [None]
